FAERS Safety Report 4498478-0 (Version None)
Quarter: 2004Q4

REPORT INFORMATION
  Report Type: 
  Country: None (occurrence: None)
  Receive Date: 20041105
  Receipt Date: 20041026
  Transmission Date: 20050328
  Serious: Yes (Other)
  Sender: FDA-Public Use
  Company Number: 2004-10-2028

PATIENT
  Age: 30 Year

DRUGS (2)
  1. INTRON A [Suspect]
     Indication: MALIGNANT MELANOMA
     Dosage: SEE IMAGE
     Route: 058
  2. RADIATION THERAPY NO DOSE FORM [Suspect]
     Indication: MALIGNANT MELANOMA
     Dosage: 44 GY (TOTAL) X-RAY THER

REACTIONS (10)
  - CELLULITIS [None]
  - IMPAIRED HEALING [None]
  - MUSCULOSKELETAL STIFFNESS [None]
  - ODYNOPHAGIA [None]
  - PAIN [None]
  - SKIN ATROPHY [None]
  - SKIN DEPIGMENTATION [None]
  - SKIN DESQUAMATION [None]
  - SKIN ULCER [None]
  - THERAPEUTIC AGENT TOXICITY [None]
